FAERS Safety Report 5913177-3 (Version None)
Quarter: 2008Q4

REPORT INFORMATION
  Report Type: 
  Country: None (occurrence: None)
  Receive Date: 20081006
  Receipt Date: 20080819
  Transmission Date: 20090506
  Serious: Yes (Other)
  Sender: FDA-Public Use
  Company Number: 2008AL008098

PATIENT
  Age: 81 Year
  Sex: Female
  Weight: 59.8748 kg

DRUGS (5)
  1. DIGOXIN [Suspect]
     Indication: HEART RATE IRREGULAR
     Dosage: 0.25MG, DAILY, ORAL
     Route: 048
     Dates: start: 20000101
  2. METOPROLOL TARTRATE [Concomitant]
  3. LOVASTATIN [Concomitant]
  4. ALENDRONATE SODIUM [Concomitant]
  5. ASPIRIN [Concomitant]

REACTIONS (3)
  - DYSPNOEA [None]
  - HEART RATE INCREASED [None]
  - HEART RATE IRREGULAR [None]
